FAERS Safety Report 7011698-6 (Version None)
Quarter: 2010Q3

REPORT INFORMATION
  Report Type: 
  Country: None (occurrence: None)
  Receive Date: 20100923
  Receipt Date: 20090402
  Transmission Date: 20110219
  Serious: No
  Sender: FDA-Public Use
  Company Number: US-WYE-H08827309

PATIENT
  Age: 80 Year
  Sex: Female

DRUGS (1)
  1. PREMARIN [Suspect]
     Indication: UTERINE PROLAPSE
     Dosage: SMALL AMOUNT ONCE
     Route: 061
     Dates: start: 20090401

REACTIONS (1)
  - URINARY RETENTION [None]
